FAERS Safety Report 23527553 (Version 1)
Quarter: 2024Q1

REPORT INFORMATION
  Report Type: Spontaneous
  Country: US (occurrence: None)
  Receive Date: 20240215
  Receipt Date: 20240215
  Transmission Date: 20240410
  Serious: No
  Sender: FDA-Public Use
  Company Number: None

PATIENT
  Age: 55 Year
  Sex: Male

DRUGS (1)
  1. TALTZ [Suspect]
     Active Substance: IXEKIZUMAB
     Indication: Psoriatic arthropathy
     Dosage: FREQUENCY : AS DIRECTED;?INJECT 160 MG (2 PENS) SUBCUTANEOUSLY AT WEEK 0 THEN 80 MG (1PEN) EVERY 4 W
     Route: 058
     Dates: start: 202211

REACTIONS (1)
  - Nasopharyngitis [None]
